FAERS Safety Report 4432229-0 (Version None)
Quarter: 2004Q3

REPORT INFORMATION
  Report Type: 
  Country: None (occurrence: None)
  Receive Date: 20040825
  Receipt Date: 20040818
  Transmission Date: 20050211
  Serious: Yes (Death)
  Sender: FDA-Public Use
  Company Number: JP-ROCHE-378018

PATIENT
  Age: 20 Year
  Sex: Male
  Weight: 106 kg

DRUGS (4)
  1. VESANOID [Suspect]
     Indication: ACUTE PROMYELOCYTIC LEUKAEMIA
     Route: 048
     Dates: start: 20021224, end: 20021228
  2. GABEXATE MESILATE [Concomitant]
     Dosage: RECEIVED 1500MG / DAY ON 24 DECEMBER, 2002 AND 3000MG / DAY ON 25 - 28 DECEMBER, 2002.
     Dates: start: 20021224, end: 20021228
  3. CEFOPERAZON [Concomitant]
     Dosage: RECEIVED 3G ON 24 DECEMBER, 2002 AND 4G ON 25 DECEMBER, 2002.
     Dates: start: 20021224, end: 20021225
  4. MINOMYCIN [Concomitant]
     Dates: start: 20021226, end: 20021228

REACTIONS (1)
  - CEREBRAL HAEMORRHAGE [None]
